FAERS Safety Report 4932841-6 (Version None)
Quarter: 2006Q1

REPORT INFORMATION
  Report Type: 
  Country: None (occurrence: None)
  Receive Date: 20060302
  Receipt Date: 20060302
  Transmission Date: 20060701
  Serious: Yes (Hospitalization)
  Sender: FDA-Public Use
  Company Number: None

PATIENT
  Age: 44 Year
  Sex: Male
  Weight: 113 kg

DRUGS (21)
  1. METHADONE [Suspect]
     Indication: BACK PAIN
     Dosage: 10 MG FOR 2 BID PRN PAIN
     Dates: start: 20060104
  2. ALBUTEROL [Concomitant]
  3. GATIFLOXACIN [Concomitant]
  4. BACLOFEN [Concomitant]
  5. LORAZEPAM [Concomitant]
  6. QUININE [Concomitant]
  7. VENLAVAXINE [Concomitant]
  8. INSULIN [Concomitant]
  9. HYDROCODONE BITARTRATE + ACETAMINOPHEN [Concomitant]
  10. CA CO3 [Concomitant]
  11. LISINOPRIL [Concomitant]
  12. ALPROSTADIL [Concomitant]
  13. GABAPENTIN [Concomitant]
  14. LORATADINE [Concomitant]
  15. BUPROPION HCL [Concomitant]
  16. GLUCOSE CHEW TAB [Concomitant]
  17. METOPROLOL [Concomitant]
  18. NITRO [Concomitant]
  19. BUSPIRONE [Concomitant]
  20. GUAIFENESINE [Concomitant]
  21. OMEPRAZOLE [Concomitant]

REACTIONS (3)
  - BRONCHITIS [None]
  - NON-CARDIOGENIC PULMONARY OEDEMA [None]
  - UPPER RESPIRATORY TRACT INFECTION [None]
